FAERS Safety Report 15154821 (Version 5)
Quarter: 2018Q3

REPORT INFORMATION
  Report Type: Report from Study
  Country: GT (occurrence: GT)
  Receive Date: 20180717
  Receipt Date: 20180827
  Transmission Date: 20181010
  Serious: Yes (Death)
  Sender: FDA-Public Use
  Company Number: PHHO2018GT008173

PATIENT
  Age: 81 Year
  Sex: Male
  Weight: 61 kg

DRUGS (6)
  1. ACZ885 [Suspect]
     Active Substance: CANAKINUMAB
     Dosage: 300 MG, UNK
     Route: 058
     Dates: start: 20170427
  2. ACZ885 [Suspect]
     Active Substance: CANAKINUMAB
     Indication: CARDIOVASCULAR EVENT PROPHYLAXIS
     Dosage: NO TREATMENT
     Route: 065
  3. SALBUTAMOL + BECLOMETASONA [Concomitant]
     Indication: PRODUCT USED FOR UNKNOWN INDICATION
     Dosage: 1 DF, Q12H (100 UG+50 UG)
     Route: 055
     Dates: start: 20170427, end: 20170927
  4. BUDESONIDE. [Concomitant]
     Active Substance: BUDESONIDE
     Dosage: 2 DF, 2 CAPSULES
     Route: 055
     Dates: start: 20180627
  5. ACZ885 [Suspect]
     Active Substance: CANAKINUMAB
     Indication: CARDIOVASCULAR EVENT PROPHYLAXIS
     Dosage: UNK
     Route: 058
     Dates: end: 20180503
  6. BUDESONIDE. [Concomitant]
     Active Substance: BUDESONIDE
     Indication: PRODUCT USED FOR UNKNOWN INDICATION
     Dosage: 200 UG, Q12H
     Route: 055
     Dates: start: 20170928

REACTIONS (4)
  - Dyspnoea [Fatal]
  - Pulmonary fibrosis [Fatal]
  - Decreased appetite [Fatal]
  - Myocardial infarction [Fatal]

NARRATIVE: CASE EVENT DATE: 20160901
